FAERS Safety Report 13720664 (Version 1)
Quarter: 2017Q3

REPORT INFORMATION
  Report Type: Spontaneous
  Country: JP (occurrence: JP)
  Receive Date: 20170706
  Receipt Date: 20170706
  Transmission Date: 20171127
  Serious: No
  Sender: FDA-Public Use
  Company Number: JP-KYOWAKIRIN-2017BKK000800

PATIENT

DRUGS (2)
  1. FARESTON [Suspect]
     Active Substance: TOREMIFENE CITRATE
     Indication: BREAST CANCER
     Dosage: 120 MG/DAY
     Route: 048
  2. FARESTON [Suspect]
     Active Substance: TOREMIFENE CITRATE
     Dosage: 40 MG/DAY
     Route: 048

REACTIONS (1)
  - Drug eruption [Recovering/Resolving]
